FAERS Safety Report 4645847-1 (Version None)
Quarter: 2005Q2

REPORT INFORMATION
  Report Type: 
  Country: None (occurrence: None)
  Receive Date: 20050422
  Receipt Date: 20050422
  Transmission Date: 20051028
  Serious: No
  Sender: FDA-Public Use
  Company Number: None

PATIENT
  Age: 82 Year
  Sex: Female

DRUGS (2)
  1. WARFARIN SODIUM [Suspect]
     Indication: CEREBROVASCULAR ACCIDENT
     Dosage: 5MG X 2 DAYS  ; 6MG  X 3 DAYS  ; 7.5 MG X 1 DAY
  2. WARFARIN SODIUM [Suspect]
     Indication: HYPERCOAGULATION
     Dosage: 5MG X 2 DAYS  ; 6MG  X 3 DAYS  ; 7.5 MG X 1 DAY

REACTIONS (5)
  - HAEMATOCRIT DECREASED [None]
  - HAEMATURIA [None]
  - HYPOGLYCAEMIA [None]
  - INTERNATIONAL NORMALISED RATIO INCREASED [None]
  - THROMBOSIS [None]
